FAERS Safety Report 4466286-2 (Version None)
Quarter: 2004Q4

REPORT INFORMATION
  Report Type: 
  Country: None (occurrence: None)
  Receive Date: 20041005
  Receipt Date: 20040927
  Transmission Date: 20050328
  Serious: Yes (Other)
  Sender: FDA-Public Use
  Company Number: PHBS2004TR12866

PATIENT
  Age: 32 Year
  Sex: Female

DRUGS (4)
  1. METOPROLOL [Suspect]
     Dosage: 25 MG, PRN
  2. SIBUTRAMINE [Suspect]
     Indication: OBESITY
     Dosage: 10 MG/DAY
  3. FLURBIPROFEN [Suspect]
     Dosage: 100 MG, PRN
  4. METHYLDOPA [Suspect]
     Dosage: 250 MG/DAY

REACTIONS (3)
  - BREECH PRESENTATION [None]
  - CAESAREAN SECTION [None]
  - DRUG EXPOSURE DURING PREGNANCY [None]
